FAERS Safety Report 25006608 (Version 1)
Quarter: 2025Q1

REPORT INFORMATION
  Report Type: Spontaneous
  Country: JP (occurrence: JP)
  Receive Date: 20250225
  Receipt Date: 20250225
  Transmission Date: 20250408
  Serious: Yes (Death)
  Sender: LABORATOIRES SERB
  Company Number: JP-SERB S.A.S.-2171674

PATIENT
  Age: 7 Decade

DRUGS (1)
  1. GLUCARPIDASE [Suspect]
     Active Substance: GLUCARPIDASE
     Indication: Toxicity to various agents

REACTIONS (1)
  - Death [Fatal]
